FAERS Safety Report 4907361-5 (Version None)
Quarter: 2006Q1

REPORT INFORMATION
  Report Type: 
  Country: None (occurrence: None)
  Receive Date: 20060208
  Receipt Date: 20060208
  Transmission Date: 20060701
  Serious: Yes (Hospitalization)
  Sender: FDA-Public Use
  Company Number: None

PATIENT
  Age: 76 Year
  Sex: Male
  Weight: 90.7194 kg

DRUGS (2)
  1. HEPARIN [Suspect]
     Indication: CONFUSIONAL STATE
     Dosage: TITRATED IV
     Route: 042
     Dates: start: 20060117, end: 20060119
  2. ENOXAPARIN SODIUM [Suspect]
     Indication: CONFUSIONAL STATE
     Dosage: 100 MG BID SQ
     Route: 058
     Dates: start: 20060118, end: 20060118

REACTIONS (6)
  - CARDIAC FAILURE CONGESTIVE [None]
  - DISSEMINATED INTRAVASCULAR COAGULATION [None]
  - ECCHYMOSIS [None]
  - HAEMORRHAGE SUBCUTANEOUS [None]
  - HEPARIN-INDUCED THROMBOCYTOPENIA [None]
  - PORTAL HYPERTENSION [None]
